FAERS Safety Report 23237518 (Version 1)
Quarter: 2023Q4

REPORT INFORMATION
  Report Type: Spontaneous
  Country: US (occurrence: US)
  Receive Date: 20231128
  Receipt Date: 20231128
  Transmission Date: 20240109
  Serious: No
  Sender: FDA-Public Use
  Company Number: US-009507513-2311USA007157

PATIENT
  Age: 69 Year
  Sex: Female

DRUGS (1)
  1. ZINPLAVA [Suspect]
     Active Substance: BEZLOTOXUMAB
     Indication: Clostridium difficile infection
     Dosage: 1000MG ONE TIME INFUSION
     Route: 042
     Dates: start: 20231102

REACTIONS (2)
  - Headache [Not Recovered/Not Resolved]
  - Hypertension [Not Recovered/Not Resolved]

NARRATIVE: CASE EVENT DATE: 20231102
